FAERS Safety Report 5082630-X (Version None)
Quarter: 2006Q3

REPORT INFORMATION
  Report Type: 
  Country: None (occurrence: None)
  Receive Date: 20060817
  Receipt Date: 20060809
  Transmission Date: 20061208
  Serious: Yes (Hospitalization)
  Sender: FDA-Public Use
  Company Number: 2006UW16181

PATIENT
  Age: 9 Year
  Sex: Male
  Weight: 32 kg

DRUGS (3)
  1. SYMBICORT TURBUHALER [Suspect]
     Indication: ASTHMA
     Dosage: 12/400 MCG ONCE DAILY
     Route: 055
     Dates: start: 20060806, end: 20060806
  2. SINGULAIR [Concomitant]
     Indication: ASTHMA
     Route: 048
     Dates: start: 20000101
  3. BUDECORT AQUA [Concomitant]
     Indication: RHINITIS
     Route: 045
     Dates: start: 20000101

REACTIONS (7)
  - ACCIDENTAL DRUG INTAKE BY CHILD [None]
  - ARRHYTHMIA [None]
  - CYANOSIS [None]
  - MEDICATION ERROR [None]
  - TACHYCARDIA [None]
  - TREMOR [None]
  - VOMITING [None]
